FAERS Safety Report 9729260 (Version 2)
Quarter: 2014Q1

REPORT INFORMATION
  Report Type: Spontaneous
  Country: US (occurrence: US)
  Receive Date: 20131204
  Receipt Date: 20140210
  Transmission Date: 20141002
  Serious: Yes (Other)
  Sender: FDA-Public Use
  Company Number: US-BRISTOL-MYERS SQUIBB COMPANY-19855857

PATIENT
  Age: 69 Year
  Sex: Male
  Weight: 99.32 kg

DRUGS (29)
  1. ABILIFY TABS 15 MG [Suspect]
     Route: 048
     Dates: start: 20100802, end: 20110112
  2. BUSPAR TABS 15 MG [Concomitant]
     Route: 048
     Dates: start: 20080101, end: 20100802
  3. GLUCOPHAGE TABS 500 MG [Concomitant]
     Route: 048
  4. PLAVIX TABS [Concomitant]
     Route: 048
  5. METOPROLOL SUCCINATE [Concomitant]
     Dosage: 1DF=25MG TABS
     Route: 049
  6. LISINOPRIL [Concomitant]
     Dosage: 1DF=2.5MG TABS
     Route: 048
  7. NITROQUICK [Concomitant]
     Route: 060
  8. LOVASTATIN [Concomitant]
     Dosage: 1DF=20MG TABS
     Route: 048
  9. NIASPAN [Concomitant]
     Dosage: 1DF=1000MG TABS
     Route: 048
  10. ASPIRIN [Concomitant]
     Dosage: 1DF=81MG TABS?ADULT ASPIRIN:81 MG:02AUG10
     Route: 048
  11. GLYBURIDE [Concomitant]
     Dosage: 1DF=5MG TABS
     Route: 048
  12. FLOMAX [Concomitant]
     Dosage: 1DF=.4MG CAPS
     Route: 048
     Dates: start: 20101210
  13. EFFEXOR XR [Concomitant]
     Dosage: 1DF=150MG CAPS
     Route: 048
     Dates: start: 20100802
  14. PANTOPRAZOLE SODIUM [Concomitant]
     Dosage: 1DF=25MG TABS
     Route: 048
  15. ZOLPIDEM TARTRATE [Concomitant]
     Dosage: 1DF=1/2 AT BED TIME
     Route: 048
  16. TYLENOL [Concomitant]
     Dosage: 1DF=500MG TABS
     Route: 048
  17. MULTIPLE VITAMINS [Concomitant]
     Route: 048
  18. CALTRATE [Concomitant]
     Dosage: 1DF=600-400MG UNITS TABS
     Route: 048
  19. LODOSYN [Concomitant]
     Route: 048
     Dates: start: 20110101
  20. LEVODOPA [Concomitant]
     Dates: start: 20110101
  21. RANITIDINE [Concomitant]
     Route: 048
     Dates: start: 20101130
  22. MICRONASE [Concomitant]
     Route: 048
     Dates: start: 20100802
  23. TOPROL XL [Concomitant]
     Route: 048
     Dates: start: 20100802
  24. AMBIEN [Concomitant]
     Route: 048
     Dates: start: 20100802
  25. MEVACOR [Concomitant]
     Route: 048
     Dates: start: 20100802
  26. NIASPAN [Concomitant]
     Route: 048
     Dates: start: 20100802
  27. PRINIVIL [Concomitant]
     Route: 048
     Dates: start: 20100802
  28. NITROQUICK [Concomitant]
     Route: 048
     Dates: start: 20100802
  29. VENTOLIN [Concomitant]
     Dosage: 1DF:2 PUFFS
     Route: 055
     Dates: start: 20100802

REACTIONS (6)
  - Parkinson^s disease [Unknown]
  - Constipation [Unknown]
  - Muscular weakness [Unknown]
  - Myalgia [Unknown]
  - Ear discomfort [Unknown]
  - Epistaxis [Unknown]
